FAERS Safety Report 8398532-7 (Version None)
Quarter: 2012Q2

REPORT INFORMATION
  Report Type: 
  Country: None (occurrence: None)
  Receive Date: 20120531
  Receipt Date: 20120516
  Transmission Date: 20120825
  Serious: Yes (Hospitalization)
  Sender: FDA-Public Use
  Company Number: CH-ROCHE-1070639

PATIENT
  Age: 66 Year
  Sex: Male
  Weight: 73 kg

DRUGS (3)
  1. TAMSULOSIN HCL [Concomitant]
     Indication: BENIGN PROSTATIC HYPERPLASIA
     Route: 048
  2. ACETAMINOPHEN [Concomitant]
     Indication: PYREXIA
     Route: 048
  3. ZELBORAF [Suspect]
     Indication: MALIGNANT MELANOMA
     Route: 048
     Dates: start: 20120228, end: 20120322

REACTIONS (5)
  - DIARRHOEA [None]
  - DECREASED APPETITE [None]
  - RENAL FAILURE ACUTE [None]
  - PYREXIA [None]
  - TREMOR [None]
